FAERS Safety Report 7130314-6 (Version None)
Quarter: 2010Q4

REPORT INFORMATION
  Report Type: 
  Country: None (occurrence: None)
  Receive Date: 20101201
  Receipt Date: 20101119
  Transmission Date: 20110411
  Serious: Yes (Hospitalization)
  Sender: FDA-Public Use
  Company Number: JP-ASTRAZENECA-2010SE56195

PATIENT
  Age: 59 Year
  Sex: Male
  Weight: 98 kg

DRUGS (7)
  1. ECARD COMBINATION TABLETS HD [Suspect]
     Indication: HYPERTENSION
     Route: 048
     Dates: start: 20100425, end: 20100727
  2. NORVASC [Concomitant]
     Indication: HYPERTENSION
     Route: 048
     Dates: end: 20100727
  3. BEZATATE SR [Concomitant]
     Indication: DYSLIPIDAEMIA
     Route: 048
     Dates: end: 20100727
  4. LIPIDIL [Concomitant]
     Indication: DYSLIPIDAEMIA
     Route: 048
     Dates: end: 20100727
  5. ASPIRIN [Concomitant]
     Indication: ANGINA PECTORIS
     Route: 048
     Dates: end: 20100727
  6. LEVEMIR [Concomitant]
     Indication: DIABETES MELLITUS
     Route: 042
  7. NOVORAPID FLEXPEN [Concomitant]
     Indication: DIABETES MELLITUS
     Route: 042

REACTIONS (3)
  - BLOOD UREA INCREASED [None]
  - DEHYDRATION [None]
  - HEAT ILLNESS [None]
